FAERS Safety Report 4893705-X (Version None)
Quarter: 2006Q1

REPORT INFORMATION
  Report Type: 
  Country: None (occurrence: None)
  Receive Date: 20060127
  Receipt Date: 20060113
  Transmission Date: 20060701
  Serious: Yes (Hospitalization)
  Sender: FDA-Public Use
  Company Number: US-GLAXOSMITHKLINE-A0589248A

PATIENT
  Age: 79 Year
  Sex: Female
  Weight: 55.5 kg

DRUGS (1)
  1. TOPOTECAN HYDROCHLORIDE [Suspect]
     Dosage: 1.5MGM2 CYCLIC
     Route: 042
     Dates: start: 20051031

REACTIONS (5)
  - ANAEMIA [None]
  - CHILLS [None]
  - DYSPNOEA [None]
  - FATIGUE [None]
  - HYPOXIA [None]
